FAERS Safety Report 7884768-8 (Version None)
Quarter: 2011Q4

REPORT INFORMATION
  Report Type: 
  Country: None (occurrence: None)
  Receive Date: 20111102
  Receipt Date: 20111024
  Transmission Date: 20120403
  Serious: Yes (Congenital Anomaly, Other)
  Sender: FDA-Public Use
  Company Number: US-GILEAD-2011-0046046

PATIENT
  Age: 18 Week

DRUGS (2)
  1. EMTRICITABINE/TENOFOVIR DISOPROXIL FUMARATE [Suspect]
     Indication: HIV INFECTION
     Route: 064
  2. VIRAMUNE [Concomitant]
     Indication: HIV INFECTION
     Route: 064

REACTIONS (1)
  - ULTRASOUND ANTENATAL SCREEN ABNORMAL [None]
